FAERS Safety Report 22802630 (Version 2)
Quarter: 2023Q4

REPORT INFORMATION
  Report Type: Spontaneous
  Country: ES (occurrence: ES)
  Receive Date: 20230809
  Receipt Date: 20231108
  Transmission Date: 20240109
  Serious: Yes (Hospitalization, Other)
  Sender: FDA-Public Use
  Company Number: US-Hikma Pharmaceuticals-US-H14001-23-00457

PATIENT
  Age: 65 Year
  Sex: Male

DRUGS (90)
  1. FLUOROURACIL [Suspect]
     Active Substance: FLUOROURACIL
     Indication: Colorectal cancer
     Dosage: 688 MILLIGRAM
     Route: 065
     Dates: start: 20220902
  2. FLUOROURACIL [Suspect]
     Active Substance: FLUOROURACIL
     Dosage: 3302 MILLIGRAM
     Route: 065
     Dates: start: 20230606
  3. FLUOROURACIL [Suspect]
     Active Substance: FLUOROURACIL
     Dosage: 550 MILLIGRAM
     Route: 065
     Dates: start: 20230323
  4. FLUOROURACIL [Suspect]
     Active Substance: FLUOROURACIL
     Dosage: 550 MILLIGRAM
     Route: 065
     Dates: start: 20230522
  5. FLUOROURACIL [Suspect]
     Active Substance: FLUOROURACIL
     Dosage: 3302 MILLIGRAM
     Route: 065
     Dates: start: 20230410
  6. FLUOROURACIL [Suspect]
     Active Substance: FLUOROURACIL
     Dosage: 3302 MILLIGRAM
     Route: 065
     Dates: start: 20230223
  7. FLUOROURACIL [Suspect]
     Active Substance: FLUOROURACIL
     Dosage: 550 MILLIGRAM
     Route: 065
     Dates: start: 20230606
  8. FLUOROURACIL [Suspect]
     Active Substance: FLUOROURACIL
     Dosage: 3302 MILLIGRAM
     Route: 065
     Dates: start: 20230424
  9. FLUOROURACIL [Suspect]
     Active Substance: FLUOROURACIL
     Dosage: 3302 MILLIGRAM
     Route: 065
     Dates: start: 20220930
  10. FLUOROURACIL [Suspect]
     Active Substance: FLUOROURACIL
     Dosage: 55 MILLIGRAM
     Route: 065
     Dates: start: 20220930
  11. FLUOROURACIL [Suspect]
     Active Substance: FLUOROURACIL
     Dosage: 550 MILLIGRAM
     Route: 065
     Dates: start: 20230508
  12. FLUOROURACIL [Suspect]
     Active Substance: FLUOROURACIL
     Dosage: 4128 MILLIGRAM
     Route: 065
     Dates: start: 20220902
  13. FLUOROURACIL [Suspect]
     Active Substance: FLUOROURACIL
     Dosage: 3302 MILLIGRAM
     Route: 065
     Dates: start: 20230508
  14. FLUOROURACIL [Suspect]
     Active Substance: FLUOROURACIL
     Dosage: 3302 MILLIGRAM
     Route: 065
     Dates: start: 20230323
  15. FLUOROURACIL [Suspect]
     Active Substance: FLUOROURACIL
     Dosage: 550 MILLIGRAM
     Route: 065
     Dates: start: 20230424
  16. FLUOROURACIL [Suspect]
     Active Substance: FLUOROURACIL
     Dosage: 550 MILLIGRAM
     Route: 065
     Dates: start: 20230410
  17. FLUOROURACIL [Suspect]
     Active Substance: FLUOROURACIL
     Dosage: 550 MILLIGRAM
     Route: 065
     Dates: start: 20230309
  18. FLUOROURACIL [Suspect]
     Active Substance: FLUOROURACIL
     Dosage: 3302 MILLIGRAM
     Route: 065
     Dates: start: 20230309
  19. FLUOROURACIL [Suspect]
     Active Substance: FLUOROURACIL
     Dosage: 3302 MILLIGRAM
     Route: 065
     Dates: start: 20230522
  20. FLUOROURACIL [Suspect]
     Active Substance: FLUOROURACIL
     Dosage: 550 MILLIGRAM
     Route: 065
     Dates: start: 20230223
  21. OXALIPLATIN [Suspect]
     Active Substance: OXALIPLATIN
     Indication: Colorectal cancer
     Dosage: 112 MILLIGRAM
     Route: 065
     Dates: start: 20220930
  22. OXALIPLATIN [Suspect]
     Active Substance: OXALIPLATIN
     Dosage: 146 MILLIGRAM
     Route: 065
     Dates: start: 20220902
  23. ETRUMADENANT [Suspect]
     Active Substance: ETRUMADENANT
     Indication: Colorectal cancer
     Route: 065
     Dates: start: 20230522, end: 20230604
  24. ETRUMADENANT [Suspect]
     Active Substance: ETRUMADENANT
     Route: 065
     Dates: start: 20230802, end: 20230807
  25. ETRUMADENANT [Suspect]
     Active Substance: ETRUMADENANT
     Route: 065
     Dates: start: 20230309, end: 20230406
  26. ETRUMADENANT [Suspect]
     Active Substance: ETRUMADENANT
     Route: 065
     Dates: start: 20221027
  27. ETRUMADENANT [Suspect]
     Active Substance: ETRUMADENANT
     Route: 065
     Dates: start: 20220905
  28. ETRUMADENANT [Suspect]
     Active Substance: ETRUMADENANT
     Route: 065
     Dates: start: 20230604
  29. ETRUMADENANT [Suspect]
     Active Substance: ETRUMADENANT
     Route: 065
     Dates: start: 20221204
  30. ETRUMADENANT [Suspect]
     Active Substance: ETRUMADENANT
     Route: 065
     Dates: start: 20230410, end: 20230507
  31. ETRUMADENANT [Suspect]
     Active Substance: ETRUMADENANT
     Route: 065
     Dates: start: 20230310, end: 20230406
  32. ETRUMADENANT [Suspect]
     Active Substance: ETRUMADENANT
     Route: 065
     Dates: start: 20230423, end: 20230507
  33. ETRUMADENANT [Suspect]
     Active Substance: ETRUMADENANT
     Route: 065
     Dates: start: 20221027
  34. ETRUMADENANT [Suspect]
     Active Substance: ETRUMADENANT
     Route: 065
     Dates: start: 20230324, end: 20230406
  35. ETRUMADENANT [Suspect]
     Active Substance: ETRUMADENANT
     Route: 065
     Dates: start: 20221205, end: 20230122
  36. ETRUMADENANT [Suspect]
     Active Substance: ETRUMADENANT
     Route: 065
     Dates: start: 20220905
  37. ETRUMADENANT [Suspect]
     Active Substance: ETRUMADENANT
     Route: 065
     Dates: start: 20230523, end: 20230604
  38. ETRUMADENANT [Suspect]
     Active Substance: ETRUMADENANT
     Route: 065
     Dates: start: 20221027
  39. ETRUMADENANT [Suspect]
     Active Substance: ETRUMADENANT
     Route: 065
     Dates: start: 20230808, end: 20230819
  40. ETRUMADENANT [Suspect]
     Active Substance: ETRUMADENANT
     Route: 065
     Dates: start: 20230509, end: 20230604
  41. ETRUMADENANT [Suspect]
     Active Substance: ETRUMADENANT
     Route: 065
     Dates: start: 20230110, end: 20230122
  42. ETRUMADENANT [Suspect]
     Active Substance: ETRUMADENANT
     Route: 065
     Dates: start: 20230322, end: 20230406
  43. ETRUMADENANT [Suspect]
     Active Substance: ETRUMADENANT
     Route: 065
     Dates: start: 20230424, end: 20230507
  44. ETRUMADENANT [Suspect]
     Active Substance: ETRUMADENANT
     Route: 065
     Dates: start: 20230309, end: 20230406
  45. ETRUMADENANT [Suspect]
     Active Substance: ETRUMADENANT
     Route: 065
     Dates: start: 20220915, end: 20230929
  46. ETRUMADENANT [Suspect]
     Active Substance: ETRUMADENANT
     Route: 065
     Dates: start: 20230406
  47. ETRUMADENANT [Suspect]
     Active Substance: ETRUMADENANT
     Route: 065
     Dates: start: 20230711, end: 20230807
  48. ETRUMADENANT [Suspect]
     Active Substance: ETRUMADENANT
     Route: 065
     Dates: start: 20230508, end: 20230604
  49. ETRUMADENANT [Suspect]
     Active Substance: ETRUMADENANT
     Route: 065
     Dates: start: 20230903, end: 20230929
  50. ETRUMADENANT [Suspect]
     Active Substance: ETRUMADENANT
     Route: 065
     Dates: start: 20230507
  51. ETRUMADENANT [Suspect]
     Active Substance: ETRUMADENANT
     Route: 065
     Dates: start: 20230411, end: 20230507
  52. ETRUMADENANT [Suspect]
     Active Substance: ETRUMADENANT
     Route: 065
     Dates: start: 20230323, end: 20230406
  53. ETRUMADENANT [Suspect]
     Active Substance: ETRUMADENANT
     Route: 065
     Dates: start: 20230808, end: 20230819
  54. ETRUMADENANT [Suspect]
     Active Substance: ETRUMADENANT
     Route: 065
     Dates: start: 20230425, end: 20230507
  55. ETRUMADENANT [Suspect]
     Active Substance: ETRUMADENANT
     Route: 065
     Dates: start: 20230109, end: 20230122
  56. ETRUMADENANT [Suspect]
     Active Substance: ETRUMADENANT
     Route: 065
     Dates: start: 20230521, end: 20230604
  57. ETRUMADENANT [Suspect]
     Active Substance: ETRUMADENANT
     Route: 065
     Dates: start: 20221218, end: 20230122
  58. ETRUMADENANT [Suspect]
     Active Substance: ETRUMADENANT
     Route: 065
     Dates: start: 20221206, end: 20230122
  59. ZIMBERELIMAB [Suspect]
     Active Substance: ZIMBERELIMAB
     Indication: Colorectal cancer
     Dosage: 400 MILLIGRAM
     Route: 065
     Dates: start: 20220902
  60. ZIMBERELIMAB [Suspect]
     Active Substance: ZIMBERELIMAB
     Dosage: 480 MILLIGRAM
     Route: 065
     Dates: start: 20230508
  61. ZIMBERELIMAB [Suspect]
     Active Substance: ZIMBERELIMAB
     Dosage: 480 MILLIGRAM
     Route: 065
     Dates: start: 20230606
  62. ZIMBERELIMAB [Suspect]
     Active Substance: ZIMBERELIMAB
     Dosage: 400 MILLIGRAM
     Route: 065
     Dates: start: 20220930
  63. ZIMBERELIMAB [Suspect]
     Active Substance: ZIMBERELIMAB
     Dosage: 480 MILLIGRAM
     Route: 065
     Dates: start: 20230410
  64. LEUCOVORIN [Suspect]
     Active Substance: LEUCOVORIN\LEUCOVORIN CALCIUM
     Indication: Colorectal cancer
     Dosage: 400 MILLIGRAM
     Route: 065
     Dates: start: 20220902
  65. LEUCOVORIN [Suspect]
     Active Substance: LEUCOVORIN\LEUCOVORIN CALCIUM
     Dosage: 99 MILLIGRAM
     Route: 065
     Dates: start: 20230223
  66. LEUCOVORIN [Suspect]
     Active Substance: LEUCOVORIN\LEUCOVORIN CALCIUM
     Dosage: 99 MILLIGRAM
     Route: 065
     Dates: start: 20230323
  67. LEUCOVORIN [Suspect]
     Active Substance: LEUCOVORIN\LEUCOVORIN CALCIUM
     Dosage: 99 MILLIGRAM
     Route: 065
     Dates: start: 20230309
  68. LEUCOVORIN [Suspect]
     Active Substance: LEUCOVORIN\LEUCOVORIN CALCIUM
     Dosage: 99 MILLIGRAM
     Route: 065
     Dates: start: 20230522
  69. LEUCOVORIN [Suspect]
     Active Substance: LEUCOVORIN\LEUCOVORIN CALCIUM
     Dosage: 400 MILLIGRAM
     Route: 065
     Dates: start: 20220930
  70. LEUCOVORIN [Suspect]
     Active Substance: LEUCOVORIN\LEUCOVORIN CALCIUM
     Dosage: 99 MILLIGRAM
     Route: 065
     Dates: start: 20230424
  71. LEUCOVORIN [Suspect]
     Active Substance: LEUCOVORIN\LEUCOVORIN CALCIUM
     Dosage: 99 MILLIGRAM
     Route: 065
     Dates: start: 20230410
  72. LEUCOVORIN [Suspect]
     Active Substance: LEUCOVORIN\LEUCOVORIN CALCIUM
     Dosage: 99 MILLIGRAM
     Route: 065
     Dates: start: 20230508
  73. LEUCOVORIN [Suspect]
     Active Substance: LEUCOVORIN\LEUCOVORIN CALCIUM
     Dosage: 99 MILLIGRAM
     Route: 065
     Dates: start: 20230606
  74. BEVACIZUMAB [Suspect]
     Active Substance: BEVACIZUMAB
     Indication: Colorectal cancer
     Dosage: 325 MILLIGRAM
     Route: 065
     Dates: start: 20230410
  75. BEVACIZUMAB [Suspect]
     Active Substance: BEVACIZUMAB
     Dosage: 325 MILLIGRAM
     Route: 065
     Dates: start: 20230508
  76. BEVACIZUMAB [Suspect]
     Active Substance: BEVACIZUMAB
     Dosage: UNKNOWN
     Route: 065
     Dates: start: 20220930
  77. BEVACIZUMAB [Suspect]
     Active Substance: BEVACIZUMAB
     Dosage: 325 MILLIGRAM
     Route: 065
     Dates: start: 20230522
  78. BEVACIZUMAB [Suspect]
     Active Substance: BEVACIZUMAB
     Dosage: 325 MILLIGRAM
     Route: 065
     Dates: start: 20230424
  79. BEVACIZUMAB [Suspect]
     Active Substance: BEVACIZUMAB
     Dosage: 325 MILLIGRAM
     Route: 065
     Dates: start: 20230309
  80. BEVACIZUMAB [Suspect]
     Active Substance: BEVACIZUMAB
     Dosage: 325 MILLIGRAM
     Route: 065
     Dates: start: 20230323
  81. BEVACIZUMAB [Suspect]
     Active Substance: BEVACIZUMAB
     Dosage: 325 MILLIGRAM
     Route: 065
     Dates: start: 20230606
  82. BEVACIZUMAB [Suspect]
     Active Substance: BEVACIZUMAB
     Dosage: 325 MILLIGRAM
     Route: 065
     Dates: start: 20230808
  83. BEVACIZUMAB [Suspect]
     Active Substance: BEVACIZUMAB
     Dosage: 325 MILLIGRAM
     Route: 065
     Dates: start: 20230627
  84. BEVACIZUMAB [Suspect]
     Active Substance: BEVACIZUMAB
     Dosage: 325 MILLIGRAM
     Route: 065
     Dates: start: 20230711
  85. CHLORTHALIDONE [Concomitant]
     Active Substance: CHLORTHALIDONE
     Indication: Product used for unknown indication
     Dosage: UNKNOWN
     Route: 065
     Dates: start: 20220909
  86. ATENOLOL [Concomitant]
     Active Substance: ATENOLOL
     Indication: Product used for unknown indication
     Dosage: UNKNOWN
     Route: 065
     Dates: start: 20220909
  87. POLYETHYLENE GLYCOL 3350 [Concomitant]
     Active Substance: POLYETHYLENE GLYCOL 3350
     Indication: Product used for unknown indication
     Dosage: UNKNOWN
     Route: 065
     Dates: start: 20220909
  88. ENALAPRIL [Concomitant]
     Active Substance: ENALAPRIL
     Indication: Product used for unknown indication
     Dosage: UNKNOWN
     Route: 065
     Dates: start: 20220909
  89. CAPTOPIRIL [Concomitant]
     Indication: Product used for unknown indication
     Dosage: UNKNOWN
     Route: 065
     Dates: start: 20230123
  90. OMEPRAZOLE [Concomitant]
     Active Substance: OMEPRAZOLE
     Indication: Product used for unknown indication
     Dosage: UNKNOWN
     Route: 065
     Dates: start: 20221222

REACTIONS (7)
  - Asthenia [Unknown]
  - Respiratory tract infection [Unknown]
  - Rash [Unknown]
  - Pyrexia [Unknown]
  - Respiratory syncytial virus test positive [Unknown]
  - Neutropenia [Recovering/Resolving]
  - Oropharyngeal pain [Unknown]

NARRATIVE: CASE EVENT DATE: 20221028
